FAERS Safety Report 8021455-X (Version None)
Quarter: 2012Q1

REPORT INFORMATION
  Report Type: 
  Country: None (occurrence: None)
  Receive Date: 20120104
  Receipt Date: 20111227
  Transmission Date: 20120608
  Serious: No
  Sender: FDA-Public Use
  Company Number: US-BAYER-2011-123513

PATIENT
  Sex: Female

DRUGS (2)
  1. MIRENA [Suspect]
     Dosage: 20 MCG/24HR, CONT
  2. MIRENA [Suspect]
     Dosage: 20 MCG/24HR, CONT
     Dates: start: 20111108

REACTIONS (3)
  - MIGRAINE [None]
  - PALPITATIONS [None]
  - ACNE [None]
